FAERS Safety Report 8818530 (Version 1)
Quarter: 2012Q4

REPORT INFORMATION
  Report Type: Spontaneous
  Country: US (occurrence: None)
  Receive Date: 20121004
  Receipt Date: 20121004
  Transmission Date: 20130627
  Serious: Yes (Hospitalization, Other)
  Sender: FDA-Public Use
  Company Number: None

PATIENT
  Age: 61 Year
  Sex: Male
  Weight: 44.45 kg

DRUGS (11)
  1. IMMUNE GLOBULIN HUMAN [Suspect]
     Route: 042
     Dates: start: 20120910, end: 20120913
  2. ALBUTEROL [Concomitant]
  3. FLUTICASONE [Concomitant]
  4. MONTELUKAST [Concomitant]
  5. ASPIRIN [Concomitant]
  6. ERGOCALCIFEROL [Concomitant]
  7. LOSARTAN [Concomitant]
  8. OMEPRAZOLE [Concomitant]
  9. SIMVASTATIN [Concomitant]
  10. SITAGLIPTIN [Concomitant]
  11. PROZOSIN [Concomitant]

REACTIONS (8)
  - Chromaturia [None]
  - Headache [None]
  - Musculoskeletal pain [None]
  - Haematuria [None]
  - Dyspnoea [None]
  - Fatigue [None]
  - Extravascular haemolysis [None]
  - Renal failure acute [None]
